FAERS Safety Report 5779157-6 (Version None)
Quarter: 2008Q2

REPORT INFORMATION
  Report Type: 
  Country: None (occurrence: None)
  Receive Date: 20080619
  Receipt Date: 20080612
  Transmission Date: 20081010
  Serious: Yes (Other)
  Sender: FDA-Public Use
  Company Number: JP-BRISTOL-MYERS SQUIBB COMPANY-14195820

PATIENT
  Age: 68 Year
  Sex: Female

DRUGS (7)
  1. ABILIFY [Suspect]
     Indication: SCHIZOPHRENIA
     Dosage: 18MG-11-21JUN07-11DAYS;24MG-22JUN07-11OCT07-112DAYS;27MG-12OCT07-ONGOING.
     Route: 048
     Dates: start: 20070524
  2. ZYPREXA [Concomitant]
     Dates: end: 20070726
  3. ROHYPNOL [Concomitant]
     Route: 048
  4. EBASTEL [Concomitant]
     Route: 048
  5. CELTECT [Concomitant]
     Route: 048
  6. FLUITRAN [Concomitant]
     Route: 048
     Dates: start: 20060905
  7. ACTOS [Concomitant]

REACTIONS (1)
  - RENAL FAILURE [None]
